FAERS Safety Report 12740841 (Version 1)
Quarter: 2016Q3

REPORT INFORMATION
  Report Type: Spontaneous
  Country: US (occurrence: US)
  Receive Date: 20160914
  Receipt Date: 20160914
  Transmission Date: 20161109
  Serious: No
  Sender: FDA-Public Use
  Company Number: US-TEVA-657450USA

PATIENT
  Sex: Male

DRUGS (3)
  1. FLUOXETINE [Suspect]
     Active Substance: FLUOXETINE HYDROCHLORIDE
     Indication: ANXIETY
     Dosage: 10 MILLIGRAM DAILY; 60-80 MG
     Dates: start: 20160506
  2. FLUOXETINE [Suspect]
     Active Substance: FLUOXETINE HYDROCHLORIDE
     Indication: DEPRESSION
  3. FLUOXETINE [Suspect]
     Active Substance: FLUOXETINE HYDROCHLORIDE
     Indication: AFFECTIVE DISORDER

REACTIONS (11)
  - Product substitution issue [Unknown]
  - Lethargy [Unknown]
  - Asthenia [Unknown]
  - Neuralgia [Unknown]
  - Sleep disorder [Unknown]
  - Abnormal dreams [Unknown]
  - Ejaculation delayed [Not Recovered/Not Resolved]
  - Insomnia [Not Recovered/Not Resolved]
  - Product measured potency issue [Unknown]
  - Myalgia [Unknown]
  - Agitation [Unknown]
